FAERS Safety Report 17191307 (Version 1)
Quarter: 2019Q4

REPORT INFORMATION
  Report Type: Spontaneous
  Country: US (occurrence: US)
  Receive Date: 20191223
  Receipt Date: 20191223
  Transmission Date: 20200122
  Serious: Yes (Life-Threatening, Hospitalization, Other)
  Sender: FDA-Public Use
  Company Number: US-GLAXOSMITHKLINE-US2019GSK231800

PATIENT
  Age: 17 Year
  Sex: Female

DRUGS (2)
  1. WELLBUTRIN SR [Suspect]
     Active Substance: BUPROPION HYDROCHLORIDE
     Indication: PRODUCT USED FOR UNKNOWN INDICATION
     Dosage: UNK
     Route: 048
  2. SEROQUEL [Suspect]
     Active Substance: QUETIAPINE FUMARATE
     Indication: PRODUCT USED FOR UNKNOWN INDICATION
     Dosage: UNK

REACTIONS (15)
  - Cardiotoxicity [Recovered/Resolved]
  - Tachycardia [Recovered/Resolved]
  - Areflexia [Recovered/Resolved]
  - Affect lability [Recovered/Resolved]
  - Tachypnoea [Recovered/Resolved]
  - Seizure [Recovered/Resolved]
  - Electrocardiogram QT prolonged [Recovered/Resolved]
  - Mental impairment [Recovered/Resolved]
  - Generalised tonic-clonic seizure [Recovered/Resolved]
  - Agitation [Recovered/Resolved]
  - Pneumonia aspiration [Recovered/Resolved]
  - Intentional overdose [Recovered/Resolved]
  - Suicide attempt [Recovered/Resolved]
  - Confusional state [Recovered/Resolved]
  - Hallucination [Recovered/Resolved]

NARRATIVE: CASE EVENT DATE: 201710
